FAERS Safety Report 4993221-0 (Version None)
Quarter: 2006Q1

REPORT INFORMATION
  Report Type: 
  Country: None (occurrence: None)
  Receive Date: 20060314
  Receipt Date: 20050928
  Transmission Date: 20060701
  Serious: Yes (Other)
  Sender: FDA-Public Use
  Company Number: 2005BH002115

PATIENT
  Sex: 0

DRUGS (1)
  1. ROBINUL [Suspect]

REACTIONS (2)
  - PROCEDURAL HYPERTENSION [None]
  - TACHYCARDIA [None]
